FAERS Safety Report 14193641 (Version 1)
Quarter: 2017Q4

REPORT INFORMATION
  Report Type: Spontaneous
  Country: IN (occurrence: IN)
  Receive Date: 20171116
  Receipt Date: 20171116
  Transmission Date: 20180321
  Serious: Yes (Other)
  Sender: FDA-Public Use
  Company Number: IN-LUPIN LIMITED-2017-06555

PATIENT
  Age: 48 Year
  Sex: Male

DRUGS (8)
  1. CEFTRIAXONE INJECTION [Suspect]
     Active Substance: CEFTRIAXONE SODIUM
     Indication: LOWER RESPIRATORY TRACT INFECTION
     Dosage: 0.5 ML OF 2 GM ON VOLAR ASPECT OF LEFT FOREARM
  2. CLONIDINE. [Concomitant]
     Active Substance: CLONIDINE
     Indication: HYPERTENSION
  3. CARVEDILOL. [Concomitant]
     Active Substance: CARVEDILOL
     Indication: HYPERTENSION
  4. PRAZOSIN. [Concomitant]
     Active Substance: PRAZOSIN
     Indication: RETINOPATHY HYPERTENSIVE
     Dosage: 10 MG, UNK
     Route: 065
  5. CLONIDINE. [Concomitant]
     Active Substance: CLONIDINE
     Indication: RETINOPATHY HYPERTENSIVE
     Dosage: 40 MG, UNK
     Route: 065
  6. CARVEDILOL. [Concomitant]
     Active Substance: CARVEDILOL
     Indication: RETINOPATHY HYPERTENSIVE
     Dosage: 6.25 MG, UNK
     Route: 065
  7. PRAZOSIN. [Concomitant]
     Active Substance: PRAZOSIN
     Indication: HYPERTENSION
  8. CEFTRIAXONE INJECTION [Suspect]
     Active Substance: CEFTRIAXONE SODIUM
     Dosage: 2 G, UNK
     Route: 065

REACTIONS (2)
  - Angioedema [Recovering/Resolving]
  - Hypersensitivity [Recovering/Resolving]
